FAERS Safety Report 24106533 (Version 1)
Quarter: 2024Q3

REPORT INFORMATION
  Report Type: Spontaneous
  Country: FR (occurrence: FR)
  Receive Date: 20240717
  Receipt Date: 20240717
  Transmission Date: 20241017
  Serious: Yes (Death)
  Sender: MYLAN
  Company Number: FR-MYLANLABS-2024M1065773

PATIENT
  Age: 17 Year
  Sex: Male

DRUGS (1)
  1. METHYLPHENIDATE [Suspect]
     Active Substance: METHYLPHENIDATE
     Indication: Attention deficit hyperactivity disorder
     Dosage: 45 MILLIGRAM, QD
     Route: 065

REACTIONS (3)
  - Cardiac failure [Fatal]
  - Mitral valve incompetence [Fatal]
  - Cardiac valve disease [Fatal]
